FAERS Safety Report 13648349 (Version 16)
Quarter: 2018Q2

REPORT INFORMATION
  Report Type: Report from Study
  Country: US (occurrence: US)
  Receive Date: 20170613
  Receipt Date: 20180613
  Transmission Date: 20180711
  Serious: Yes (Hospitalization, Other)
  Sender: FDA-Public Use
  Company Number: PHHY2017US085223

PATIENT
  Age: 7 Year
  Sex: Female
  Weight: 66 kg

DRUGS (36)
  1. CICLOSPORIN [Suspect]
     Active Substance: CYCLOSPORINE
     Dosage: 150 MG, QD
     Route: 065
     Dates: start: 20160211, end: 20160509
  2. VOLTAREN [Suspect]
     Active Substance: DICLOFENAC SODIUM
     Indication: STILL^S DISEASE
     Dosage: 100 MG, QD
     Route: 065
     Dates: start: 20151209, end: 20160113
  3. KINERET [Suspect]
     Active Substance: ANAKINRA
     Indication: HYPERTENSION
     Dosage: 100 MG, QD
     Route: 065
     Dates: start: 20160211, end: 20160224
  4. PREDNISONE. [Concomitant]
     Active Substance: PREDNISONE
     Indication: STILL^S DISEASE
     Dosage: 40 MG, QD
     Route: 065
     Dates: start: 20160429
  5. CICLOSPORIN [Suspect]
     Active Substance: CYCLOSPORINE
     Indication: STILL^S DISEASE
     Dosage: 100 MG, QD
     Route: 065
     Dates: start: 20160113, end: 20160211
  6. ILARIS [Suspect]
     Active Substance: CANAKINUMAB
     Indication: STILL^S DISEASE
     Dosage: 180 MG, QD
     Route: 065
     Dates: start: 20160325, end: 20160413
  7. ACTEMRA [Suspect]
     Active Substance: TOCILIZUMAB
     Dosage: 460 MG, QD
     Route: 041
     Dates: start: 20170322, end: 20170419
  8. ACTEMRA [Suspect]
     Active Substance: TOCILIZUMAB
     Dosage: 460 MG, QD
     Route: 041
     Dates: start: 20170419, end: 20170420
  9. ILARIS [Suspect]
     Active Substance: CANAKINUMAB
     Dosage: 180 MG, QD
     Route: 065
     Dates: start: 20160428, end: 20160608
  10. RELAFEN [Suspect]
     Active Substance: NABUMETONE
     Indication: STILL^S DISEASE
     Dosage: 500 MG, QD
     Route: 065
     Dates: start: 20151028, end: 20151118
  11. RELAFEN [Suspect]
     Active Substance: NABUMETONE
     Dosage: 750 MG, QD
     Route: 065
     Dates: start: 20151118, end: 20151209
  12. NAPROSYN [Suspect]
     Active Substance: NAPROXEN
     Dosage: 500 MG, QD
     Route: 065
     Dates: start: 20160113, end: 20160413
  13. ACTEMRA [Suspect]
     Active Substance: TOCILIZUMAB
     Indication: STILL^S DISEASE
     Dosage: 500 MG, QD
     Route: 041
     Dates: start: 20160621, end: 20160719
  14. ACTEMRA [Suspect]
     Active Substance: TOCILIZUMAB
     Dosage: 460 MG, UNK
     Route: 041
     Dates: start: 20170628
  15. CICLOSPORIN [Suspect]
     Active Substance: CYCLOSPORINE
     Dosage: 100 MG, QD
     Route: 065
     Dates: start: 20160309, end: 20160819
  16. CICLOSPORIN [Suspect]
     Active Substance: CYCLOSPORINE
     Dosage: 100 MG, QD
     Route: 065
     Dates: start: 20160826, end: 20160906
  17. ACTEMRA [Suspect]
     Active Substance: TOCILIZUMAB
     Dosage: UNK
     Route: 041
     Dates: start: 20160706
  18. ACTEMRA [Suspect]
     Active Substance: TOCILIZUMAB
     Dosage: 460 MG, QD
     Route: 041
     Dates: start: 20160823
  19. CLOTRIMAZOLE. [Concomitant]
     Active Substance: CLOTRIMAZOLE
     Indication: GENITAL RASH
     Dosage: 1 DF, QD (1 APPLICATION)
     Route: 065
     Dates: start: 20170524
  20. LORATADINE. [Concomitant]
     Active Substance: LORATADINE
     Indication: RHINITIS ALLERGIC
     Dosage: 10 MG, QD
     Route: 065
     Dates: start: 20161018
  21. PREDNISONE. [Concomitant]
     Active Substance: PREDNISONE
     Dosage: 5 MG, QD
     Route: 065
     Dates: start: 20170208
  22. MEDROL [Concomitant]
     Active Substance: METHYLPREDNISOLONE
     Dosage: 38 MG, QD
     Route: 065
  23. DIPHENHYDRAMINE. [Concomitant]
     Active Substance: DIPHENHYDRAMINE
     Indication: PRODUCT USED FOR UNKNOWN INDICATION
     Dosage: UNK
     Route: 065
     Dates: start: 20160706, end: 20160706
  24. NAPROSYN [Suspect]
     Active Substance: NAPROXEN
     Indication: JUVENILE IDIOPATHIC ARTHRITIS
     Dosage: 500 MG, UNK
     Route: 065
     Dates: start: 20150901, end: 20151028
  25. NAPROSYN [Suspect]
     Active Substance: NAPROXEN
     Dosage: 500 MG, UNK
     Route: 065
     Dates: start: 20160420
  26. KINERET [Suspect]
     Active Substance: ANAKINRA
     Indication: JUVENILE IDIOPATHIC ARTHRITIS
     Dosage: 100 MG, QD
     Route: 065
     Dates: start: 20160113, end: 20160211
  27. HUMIRA [Suspect]
     Active Substance: ADALIMUMAB
     Indication: STILL^S DISEASE
     Dosage: 40 MG, QD
     Route: 065
     Dates: start: 20160106, end: 20160113
  28. MEDROL [Concomitant]
     Active Substance: METHYLPREDNISOLONE
     Indication: PRODUCT USED FOR UNKNOWN INDICATION
     Dosage: 40 MG, QD
     Route: 065
  29. TYLENOL [Concomitant]
     Active Substance: ACETAMINOPHEN
     Indication: PRODUCT USED FOR UNKNOWN INDICATION
     Dosage: 812.5 MG, UNK
     Route: 065
     Dates: start: 20160706, end: 20160706
  30. FERROUS SULFATE. [Concomitant]
     Active Substance: FERROUS SULFATE
     Indication: ANAEMIA
     Dosage: 325 MG, QD
     Route: 065
     Dates: start: 201601
  31. LORATADINE. [Concomitant]
     Active Substance: LORATADINE
     Indication: SEASONAL ALLERGY
  32. NAPROXEN. [Concomitant]
     Active Substance: NAPROXEN
     Indication: ARTHRALGIA
     Dosage: 1000 MG, QD
     Route: 065
     Dates: start: 20160113, end: 20160413
  33. OMEPRAZOLE. [Concomitant]
     Active Substance: OMEPRAZOLE
     Indication: PROPHYLAXIS
     Dosage: 40 MG, QD
     Route: 065
     Dates: start: 201509, end: 20160413
  34. RANITIDINE. [Concomitant]
     Active Substance: RANITIDINE
     Indication: ABDOMINAL PAIN
     Dosage: 75 MG, QD
     Route: 065
     Dates: start: 20170524
  35. TRI-VITAMIN [Concomitant]
     Indication: PRODUCT USED FOR UNKNOWN INDICATION
     Dosage: 1 DF, QD
     Route: 065
     Dates: start: 20160912
  36. PREDNISOLONE ACETATE. [Concomitant]
     Active Substance: PREDNISOLONE ACETATE
     Indication: UVEITIS
     Dosage: 3 DRP, UNK
     Route: 065
     Dates: start: 201512

REACTIONS (40)
  - Splenomegaly [Unknown]
  - Hepatomegaly [Unknown]
  - Paronychia [Recovered/Resolved]
  - Swelling [Unknown]
  - Alanine aminotransferase increased [Unknown]
  - Weight increased [Unknown]
  - Paronychia [Recovered/Resolved]
  - Wound secretion [Unknown]
  - Hypertension [Recovered/Resolved]
  - Iron deficiency anaemia [Recovered/Resolved]
  - Rash erythematous [Unknown]
  - Tenderness [Unknown]
  - Abdominal pain [Unknown]
  - Aspartate aminotransferase increased [Unknown]
  - Activated partial thromboplastin time shortened [Unknown]
  - Obesity [Unknown]
  - Nail bed bleeding [Recovered/Resolved]
  - Fatigue [Unknown]
  - Hepatic steatosis [Unknown]
  - Dizziness [Unknown]
  - Pyrexia [Recovered/Resolved]
  - Dysuria [Unknown]
  - Gait inability [Recovering/Resolving]
  - Inflammation [Unknown]
  - Erythema [Unknown]
  - Escherichia urinary tract infection [Recovered/Resolved]
  - Infection [Recovered/Resolved]
  - Paronychia [Recovered/Resolved]
  - Oropharyngeal pain [Unknown]
  - Headache [Unknown]
  - Cough [Unknown]
  - Chills [Unknown]
  - Arthralgia [Recovering/Resolving]
  - Joint swelling [Recovering/Resolving]
  - Disorientation [Unknown]
  - Onychalgia [Unknown]
  - Flank pain [Unknown]
  - Onychalgia [Recovered/Resolved]
  - Blood glucose increased [Unknown]
  - Blood urea increased [Unknown]

NARRATIVE: CASE EVENT DATE: 20160413
